FAERS Safety Report 4284391-0 (Version None)
Quarter: 2004Q1

REPORT INFORMATION
  Report Type: 
  Country: None (occurrence: None)
  Receive Date: 20040130
  Receipt Date: 20040108
  Transmission Date: 20041129
  Serious: Yes (Hospitalization)
  Sender: FDA-Public Use
  Company Number: USA040156095

PATIENT
  Age: 84 Year
  Sex: Female

DRUGS (10)
  1. FORTEO [Suspect]
     Indication: OSTEOPOROSIS
     Dates: start: 20031201, end: 20031229
  2. CELEXA [Concomitant]
  3. PREMARIN [Concomitant]
  4. PLAQUENIL [Concomitant]
  5. SYNTHROID [Concomitant]
  6. PREDNISONE [Concomitant]
  7. MULTIVITAMIN [Concomitant]
  8. POTASSIUM [Concomitant]
  9. CALCIUM [Concomitant]
  10. ASPIRIN [Concomitant]

REACTIONS (3)
  - GASTROENTERITIS VIRAL [None]
  - HYPERTENSION [None]
  - PHARMACEUTICAL PRODUCT COMPLAINT [None]
